FAERS Safety Report 23959943 (Version 1)
Quarter: 2024Q2

REPORT INFORMATION
  Report Type: Other
  Country: EG (occurrence: None)
  Receive Date: 20240611
  Receipt Date: 20240611
  Transmission Date: 20240716
  Serious: Yes (Other)
  Sender: FDA-Public Use
  Company Number: EG-ROCHE-3578108

PATIENT
  Age: 67 Year
  Sex: Female

DRUGS (17)
  1. HERCEPTIN [Suspect]
     Active Substance: TRASTUZUMAB
     Indication: HER2 positive breast cancer
     Route: 041
     Dates: start: 20181114, end: 20190227
  2. HERCEPTIN [Suspect]
     Active Substance: TRASTUZUMAB
     Route: 041
     Dates: start: 20220115, end: 20220516
  3. HERCEPTIN [Suspect]
     Active Substance: TRASTUZUMAB
     Indication: HER2 positive breast cancer
     Route: 058
     Dates: start: 20220613, end: 20221010
  4. GEMZAR [Suspect]
     Active Substance: GEMCITABINE HYDROCHLORIDE
     Indication: HER2 positive breast cancer
     Dosage: D1,D8/3WEEKS
     Route: 042
     Dates: start: 20220115, end: 20220516
  5. TAXOTERE [Suspect]
     Active Substance: DOCETAXEL
     Indication: HER2 positive breast cancer
     Route: 042
     Dates: start: 20181114, end: 20190227
  6. PLATINOL [Suspect]
     Active Substance: CISPLATIN
     Indication: HER2 positive breast cancer
     Dosage: D1-3/3WEEKS
     Route: 042
     Dates: start: 20220115, end: 20220516
  7. PARAPLATIN [Suspect]
     Active Substance: CARBOPLATIN
     Indication: HER2 positive breast cancer
     Route: 042
     Dates: start: 20181114, end: 20190227
  8. FEMARA [Suspect]
     Active Substance: LETROZOLE
     Indication: HER2 positive breast cancer
     Route: 048
     Dates: start: 20190603, end: 20220115
  9. FASLODEX [Suspect]
     Active Substance: FULVESTRANT
     Indication: HER2 positive breast cancer
     Dosage: EVERY 2 WEEKS FOR 3 TIMES THEN MONTHLY
     Route: 030
     Dates: start: 20230402
  10. XELODA [Suspect]
     Active Substance: CAPECITABINE
     Indication: HER2 positive breast cancer
     Route: 048
     Dates: start: 20220613, end: 20221215
  11. ABEMACICLIB [Suspect]
     Active Substance: ABEMACICLIB
     Indication: HER2 positive breast cancer
     Route: 048
     Dates: start: 20230402
  12. MAGIC WASH (UNK INGREDIENTS) [Concomitant]
     Indication: Mucosal inflammation
     Route: 048
     Dates: start: 20181205, end: 20181226
  13. SUPPORTAN [Concomitant]
     Indication: Decreased appetite
     Route: 048
     Dates: start: 20190206, end: 20190703
  14. ALANYL GLUTAMINE [Concomitant]
     Active Substance: ALANYL GLUTAMINE
     Indication: Decreased appetite
     Route: 042
     Dates: start: 20190206, end: 20190210
  15. EPREX [Concomitant]
     Active Substance: ERYTHROPOIETIN
     Indication: Anaemia
     Route: 058
     Dates: start: 20220228, end: 20220328
  16. ACETAMINOPHEN [Concomitant]
     Active Substance: ACETAMINOPHEN
     Indication: Arthralgia
     Route: 048
     Dates: start: 20220416, end: 20240227
  17. PIPERACILLIN SODIUM\TAZOBACTAM SODIUM [Concomitant]
     Active Substance: PIPERACILLIN SODIUM\TAZOBACTAM SODIUM
     Indication: Febrile neutropenia
     Route: 042
     Dates: start: 20190102, end: 20190107

REACTIONS (1)
  - Jaundice [Recovered/Resolved]

NARRATIVE: CASE EVENT DATE: 20231224
